FAERS Safety Report 16749092 (Version 2)
Quarter: 2019Q3

REPORT INFORMATION
  Report Type: Report from Study
  Country: CO (occurrence: CO)
  Receive Date: 20190828
  Receipt Date: 20190911
  Transmission Date: 20191005
  Serious: Yes (Life-Threatening, Hospitalization, Other)
  Sender: FDA-Public Use
  Company Number: CO-BRISTOL-MYERS SQUIBB COMPANY-BMS-2019-083009

PATIENT
  Age: 67 Year
  Sex: Female

DRUGS (1)
  1. ABATACEPT [Suspect]
     Active Substance: ABATACEPT
     Indication: RHEUMATOID ARTHRITIS
     Dosage: 500 MILLIGRAM, EVERY 28 DAYS
     Route: 042
     Dates: end: 20190829

REACTIONS (9)
  - Poisoning [Recovered/Resolved]
  - Corneal perforation [Recovering/Resolving]
  - Loss of consciousness [Recovered/Resolved]
  - Non-cardiac chest pain [Unknown]
  - Dyspnoea [Recovered/Resolved]
  - Back pain [Unknown]
  - Eye infection [Recovering/Resolving]
  - Abdominal pain upper [Unknown]
  - Drug ineffective [Unknown]

NARRATIVE: CASE EVENT DATE: 20190626
